FAERS Safety Report 8776154 (Version 2)
Quarter: 2012Q4

REPORT INFORMATION
  Report Type: 
  Country: JP (occurrence: JP)
  Receive Date: 20120910
  Receipt Date: 20120919
  Transmission Date: 20130627
  Serious: Yes (Other)
  Sender: FDA-Public Use
  Company Number: JP-VIIV HEALTHCARE LIMITED-B0818765A

PATIENT
  Age: 77 Year
  Sex: Male

DRUGS (8)
  1. CELSENTRI [Suspect]
     Indication: HIV INFECTION
     Dosage: 150MG Per day
     Route: 048
     Dates: start: 20120405, end: 20120717
  2. EPZICOM [Concomitant]
     Indication: HIV INFECTION
     Dosage: 1IUAX Per day
     Route: 048
     Dates: start: 20070104
  3. REYATAZ [Concomitant]
     Indication: HIV INFECTION
     Dosage: 300MG Per day
     Route: 048
     Dates: start: 20070104
  4. NORVIR [Concomitant]
     Indication: HIV INFECTION
     Dosage: 100MG Per day
     Route: 048
     Dates: start: 20070104
  5. BACTRAMIN [Concomitant]
     Indication: PNEUMOCYSTIS JIROVECI PNEUMONIA
     Dosage: 1IUAX Per day
     Route: 048
     Dates: start: 20070104
  6. MUCOSTA [Concomitant]
     Indication: GASTRITIS
     Dosage: 300MG Three times per day
     Route: 048
     Dates: start: 20070104
  7. BEZATOL SR [Concomitant]
     Indication: HYPERLIPIDAEMIA
     Dosage: 400MG Twice per day
     Route: 048
     Dates: start: 20111027
  8. VALIXA [Concomitant]
     Indication: ANTIVIRAL PROPHYLAXIS
     Dosage: 450MG Per day
     Route: 048
     Dates: start: 20070104

REACTIONS (3)
  - Orthostatic hypotension [Recovered/Resolved]
  - Dizziness [Recovered/Resolved]
  - Fatigue [Unknown]
